FAERS Safety Report 7066513-1 (Version None)
Quarter: 2010Q4

REPORT INFORMATION
  Report Type: 
  Country: None (occurrence: None)
  Receive Date: 20101027
  Receipt Date: 20100222
  Transmission Date: 20110411
  Serious: No
  Sender: FDA-Public Use
  Company Number: US-WYE-H13780010

PATIENT
  Sex: Female

DRUGS (1)
  1. PREMPRO [Suspect]
     Indication: MENOPAUSE
     Dosage: 0.625/2.5MG DAILY, STOPPED, RESTARTED WITH 0.45/1.5MG DAILY, STOPPED 4 MONTHS AGO
     Route: 048

REACTIONS (3)
  - DRUG WITHDRAWAL SYNDROME [None]
  - HEADACHE [None]
  - MEMORY IMPAIRMENT [None]
